FAERS Safety Report 7361347-2 (Version None)
Quarter: 2011Q1

REPORT INFORMATION
  Report Type: 
  Country: None (occurrence: None)
  Receive Date: 20110318
  Receipt Date: 20110310
  Transmission Date: 20110831
  Serious: Yes (Other)
  Sender: FDA-Public Use
  Company Number: B0705951A

PATIENT
  Age: 67 Year
  Sex: Male

DRUGS (4)
  1. HARNAL D [Concomitant]
     Route: 048
  2. VESICARE [Concomitant]
     Route: 048
  3. INSULIN [Concomitant]
     Route: 058
  4. AVOLVE [Suspect]
     Route: 048
     Dates: start: 20110216

REACTIONS (1)
  - DIABETES MELLITUS INADEQUATE CONTROL [None]
